FAERS Safety Report 24551002 (Version 2)
Quarter: 2025Q1

REPORT INFORMATION
  Report Type: Spontaneous
  Country: MX (occurrence: MX)
  Receive Date: 20241025
  Receipt Date: 20250114
  Transmission Date: 20250408
  Serious: Yes (Other)
  Sender: GLAXOSMITHKLINE
  Company Number: MX-GLAXOSMITHKLINE INC-MX2024AMR129318

PATIENT

DRUGS (1)
  1. NUCALA [Suspect]
     Active Substance: MEPOLIZUMAB
     Indication: Product used for unknown indication
     Dosage: 100 MG, Q4W
     Route: 058
     Dates: start: 2024

REACTIONS (5)
  - Chronic rhinosinusitis with nasal polyps [Unknown]
  - Blindness unilateral [Unknown]
  - Eye injury [Unknown]
  - Symptom recurrence [Unknown]
  - Condition aggravated [Unknown]

NARRATIVE: CASE EVENT DATE: 20241001
